FAERS Safety Report 15490914 (Version 3)
Quarter: 2022Q4

REPORT INFORMATION
  Report Type: Spontaneous
  Country: IT (occurrence: IT)
  Receive Date: 20181012
  Receipt Date: 20221212
  Transmission Date: 20230112
  Serious: Yes (Hospitalization, Other)
  Sender: FDA-Public Use
  Company Number: IT-AUROBINDO-AUR-APL-2018-049793

PATIENT
  Age: 27 Year
  Sex: Male

DRUGS (9)
  1. ALPRAZOLAM [Suspect]
     Active Substance: ALPRAZOLAM
     Indication: Product used for unknown indication
     Dosage: 20 DOSAGE FORM, IN TOTAL
     Route: 048
  2. ALPRAZOLAM [Suspect]
     Active Substance: ALPRAZOLAM
     Indication: Intentional self-injury
  3. ZOLPIDEM [Suspect]
     Active Substance: ZOLPIDEM TARTRATE
     Indication: Product used for unknown indication
     Dosage: 30 DOSAGE FORM, IN TOTAL
     Route: 048
  4. ZOLPIDEM [Suspect]
     Active Substance: ZOLPIDEM TARTRATE
     Indication: Intentional self-injury
  5. TRAMADOL HYDROCHLORIDE [Suspect]
     Active Substance: TRAMADOL HYDROCHLORIDE
     Indication: Product used for unknown indication
     Dosage: 20 MILLILITER, IN TOTAL
     Route: 048
  6. TRIAZOLAM [Suspect]
     Active Substance: TRIAZOLAM
     Indication: Intentional self-injury
     Dosage: 10 DOSAGE FORM, IN TOTAL
     Route: 048
  7. CARVEDILOL [Suspect]
     Active Substance: CARVEDILOL
     Indication: Product used for unknown indication
     Dosage: 30 DOSAGE FORM, IN TOTAL
     Route: 048
  8. CARVEDILOL [Suspect]
     Active Substance: CARVEDILOL
     Indication: Intentional self-injury
  9. CAFFEINE\PROPYPHENAZONE [Suspect]
     Active Substance: CAFFEINE\PROPYPHENAZONE
     Indication: Intentional self-injury
     Dosage: 32 DOSAGE FORM, IN TOTAL
     Route: 048

REACTIONS (9)
  - Blood creatine phosphokinase increased [Unknown]
  - Blood creatinine increased [Unknown]
  - Hyporesponsive to stimuli [Unknown]
  - Sopor [Unknown]
  - Oxygen saturation decreased [Unknown]
  - Hypotension [Unknown]
  - Intentional self-injury [Unknown]
  - Intentional overdose [Unknown]
  - Drug abuse [Unknown]

NARRATIVE: CASE EVENT DATE: 20180610
